FAERS Safety Report 8434355-8 (Version None)
Quarter: 2012Q2

REPORT INFORMATION
  Report Type: 
  Country: None (occurrence: None)
  Receive Date: 20120613
  Receipt Date: 20120608
  Transmission Date: 20120825
  Serious: Yes (Hospitalization, Disabling)
  Sender: FDA-Public Use
  Company Number: US-MERCK-1110USA01314

PATIENT
  Age: 54 Year
  Sex: Female

DRUGS (6)
  1. FOSAMAX [Suspect]
     Indication: OSTEOPENIA
     Route: 048
     Dates: start: 19980101, end: 20020101
  2. FOSAMAX [Suspect]
     Route: 048
     Dates: start: 20030101, end: 20070501
  3. CLARITIN [Concomitant]
     Indication: HYPERSENSITIVITY
     Route: 048
     Dates: start: 19980101, end: 20020101
  4. FOSAMAX [Suspect]
     Route: 048
     Dates: start: 20020101, end: 20030301
  5. FOSAMAX [Suspect]
     Route: 048
  6. ALLEGRA [Concomitant]
     Indication: HYPERSENSITIVITY
     Route: 048
     Dates: start: 20030101, end: 20040101

REACTIONS (15)
  - ADVERSE EVENT [None]
  - WRIST FRACTURE [None]
  - LOW TURNOVER OSTEOPATHY [None]
  - PANCREATITIS ACUTE [None]
  - CARDIAC DISORDER [None]
  - PAIN [None]
  - POST-TRAUMATIC STRESS DISORDER [None]
  - HYPERTENSION [None]
  - FEMUR FRACTURE [None]
  - GALLBLADDER DISORDER [None]
  - ARTHROPATHY [None]
  - DIZZINESS [None]
  - GASTROOESOPHAGEAL REFLUX DISEASE [None]
  - DEPRESSION [None]
  - ANXIETY [None]
